FAERS Safety Report 7459293-9 (Version None)
Quarter: 2011Q2

REPORT INFORMATION
  Report Type: 
  Country: None (occurrence: None)
  Receive Date: 20110505
  Receipt Date: 20110502
  Transmission Date: 20111010
  Serious: No
  Sender: FDA-Public Use
  Company Number: US-PFIZER INC-2011094659

PATIENT
  Sex: Female
  Weight: 49 kg

DRUGS (8)
  1. FISH OIL [Concomitant]
     Dosage: 1000 UNK, UNK
  2. VITAMIN D [Concomitant]
     Dosage: 5000 MG, 1X/DAY
     Route: 048
  3. PRISTIQ [Suspect]
     Indication: ANXIETY
     Dosage: 50 MG, 1X/DAY
     Route: 048
     Dates: start: 20100101
  4. FLAXSEED OIL [Concomitant]
     Dosage: 1000 UNK, UNK
  5. PRISTIQ [Suspect]
     Indication: DEPRESSION
  6. BENAZEPRIL [Concomitant]
     Indication: HYPERTENSION
     Dosage: 10 MG, 1X/DAY
     Route: 048
  7. CALCIUM [Concomitant]
     Dosage: 600 MG, 3X/DAY
     Route: 048
  8. CLONAZEPAM [Concomitant]
     Indication: ANXIETY
     Dosage: 1 MG, 1X/DAY
     Route: 048

REACTIONS (3)
  - DEPRESSED MOOD [None]
  - WRONG TECHNIQUE IN DRUG USAGE PROCESS [None]
  - MALAISE [None]
